FAERS Safety Report 6740046-1 (Version None)
Quarter: 2010Q2

REPORT INFORMATION
  Report Type: 
  Country: None (occurrence: None)
  Receive Date: 20100525
  Receipt Date: 20100517
  Transmission Date: 20101027
  Serious: Yes (Other)
  Sender: FDA-Public Use
  Company Number: PHHY2010ES28643

PATIENT
  Age: 69 Year
  Sex: Male

DRUGS (1)
  1. ZOMETA [Suspect]
     Indication: COLORECTAL CANCER
     Dosage: 4 MG EVERY 28 DAYS
     Route: 042
     Dates: start: 20080101

REACTIONS (1)
  - OSTEONECROSIS OF JAW [None]
